FAERS Safety Report 4483631-2 (Version None)
Quarter: 2004Q4

REPORT INFORMATION
  Report Type: 
  Country: None (occurrence: None)
  Receive Date: 20041021
  Receipt Date: 20041021
  Transmission Date: 20050328
  Serious: Yes (Hospitalization)
  Sender: FDA-Public Use
  Company Number: None

PATIENT
  Age: 44 Year
  Sex: Male
  Weight: 95.7 kg

DRUGS (7)
  1. DIATRIZOATE MEGLUMINE [Suspect]
  2. DIPHENHYDRAMINE HCL [Concomitant]
  3. BUPROPION HCL [Concomitant]
  4. THIAMINE HCL [Concomitant]
  5. MULTIVITAMIN/MINERALS THERAPEUT CAP/TAB [Concomitant]
  6. MICONAZOLE NITRATE [Concomitant]
  7. CAPTOPRIL [Concomitant]

REACTIONS (2)
  - EYE SWELLING [None]
  - RASH ERYTHEMATOUS [None]
